FAERS Safety Report 5482934-2 (Version None)
Quarter: 2007Q4

REPORT INFORMATION
  Report Type: 
  Country: None (occurrence: None)
  Receive Date: 20071011
  Receipt Date: 20071004
  Transmission Date: 20080405
  Serious: Yes (Life-Threatening)
  Sender: FDA-Public Use
  Company Number: IT-SANOFI-SYNTHELABO-A06200700458

PATIENT
  Sex: Male

DRUGS (2)
  1. ACTRAPID [Concomitant]
     Indication: DIABETES MELLITUS
     Dosage: UNK
     Route: 058
     Dates: start: 20070724, end: 20070904
  2. ELOXATIN [Suspect]
     Indication: RECTAL CANCER
     Route: 041
     Dates: start: 20070904, end: 20070904

REACTIONS (3)
  - ERYTHEMA [None]
  - LARYNGOSPASM [None]
  - PRURITUS GENERALISED [None]
